FAERS Safety Report 7910682-5 (Version None)
Quarter: 2011Q4

REPORT INFORMATION
  Report Type: 
  Country: None (occurrence: None)
  Receive Date: 20111111
  Receipt Date: 20111103
  Transmission Date: 20120403
  Serious: Yes (Death, Hospitalization)
  Sender: FDA-Public Use
  Company Number: AT-ROCHE-1005403

PATIENT
  Age: 52 Year
  Sex: Male
  Weight: 90 kg

DRUGS (4)
  1. CANDESARTAN CILEXETIL [Concomitant]
     Dates: start: 20110101
  2. BISOPROLOL [Concomitant]
     Dates: start: 20110101
  3. VEMURAFENIB [Suspect]
     Indication: METASTATIC MALIGNANT MELANOMA
     Dosage: DRUG INTERRUPTED, 8 TABLETS PER DAY
     Route: 048
     Dates: start: 20110729, end: 20111016
  4. ESCITALOPRAM [Concomitant]
     Dates: start: 20110601

REACTIONS (1)
  - MULTI-ORGAN FAILURE [None]
